FAERS Safety Report 16653881 (Version 1)
Quarter: 2019Q3

REPORT INFORMATION
  Report Type: Spontaneous
  Country: GB (occurrence: GB)
  Receive Date: 20190731
  Receipt Date: 20190731
  Transmission Date: 20191004
  Serious: Yes (Hospitalization)
  Sender: FDA-Public Use
  Company Number: GB-MYLANLABS-2019M1071838

PATIENT
  Age: 51 Year
  Sex: Male
  Weight: 72 kg

DRUGS (1)
  1. TRAMADOL. [Suspect]
     Active Substance: TRAMADOL
     Indication: PROCEDURAL PAIN
     Dosage: 300 MILLIGRAM, QW
     Route: 048
     Dates: start: 20190203, end: 20190208

REACTIONS (1)
  - Vomiting projectile [Recovering/Resolving]

NARRATIVE: CASE EVENT DATE: 20190208
